FAERS Safety Report 5387645-X (Version None)
Quarter: 2007Q3

REPORT INFORMATION
  Report Type: 
  Country: None (occurrence: None)
  Receive Date: 20070712
  Receipt Date: 20070629
  Transmission Date: 20080115
  Serious: Yes (Other)
  Sender: FDA-Public Use
  Company Number: 2007JP003128

PATIENT
  Age: 142 Day
  Sex: Female

DRUGS (13)
  1. PROGRAF [Suspect]
     Indication: BONE MARROW TRANSPLANT
     Dosage: 0.001 MG/KG, UNKNOWN/D, UNKNOWN
  2. GAMMA GLOBULIN (IMMUNOGLOBULIN HUMAN NORMAL) FORMULATION UNKNOWN [Concomitant]
  3. PREDNISOLONE [Concomitant]
  4. VINCRISTINE (VINCRISTINE) FORMULATION UNKNOWN [Concomitant]
  5. BUSULFAN (BUSULFAN) INJECTION [Concomitant]
  6. CYCLOPHOSPHAMIDE (CYCLOPHOSPHAMIDE) FORMULATION UNKNOWN [Concomitant]
  7. ETOPOSIDE (ETOPOSIDE) FORMULATION UNKNOWN [Concomitant]
  8. METHOTREXATE FORMULATION UNKNOWN [Concomitant]
  9. PHENYTOIN (PHENYTOIN) FORMULATION UNKNOWN [Concomitant]
  10. MIDAZOLAM (MIDAZOLAM) FORMULATION UNKNOWN [Concomitant]
  11. ANTIBIOTICS FORMULATION UNKNOWN [Concomitant]
  12. GRANULOCYTE COLONY STIMULATING FACTOR (GRANULOCYTE COLONY STIMULATING [Concomitant]
  13. METHYLPREDNISOLONE [Concomitant]

REACTIONS (4)
  - B PRECURSOR TYPE ACUTE LEUKAEMIA [None]
  - HYPOXIA [None]
  - SKIN NODULE [None]
  - THROMBOTIC MICROANGIOPATHY [None]
